FAERS Safety Report 10386184 (Version 1)
Quarter: 2014Q1

REPORT INFORMATION
  Report Type: Spontaneous
  Country: US (occurrence: None)
  Receive Date: 20140306
  Receipt Date: 20140306
  Transmission Date: 20141002
  Serious: Yes (Other)
  Sender: FDA-Public Use
  Company Number: 163-21880-13083272

PATIENT
  Age: 87 Year
  Sex: Female
  Weight: 59.42 kg

DRUGS (3)
  1. REVLIMID (LENALIDOMIDE) (10 MILLIGRAM, CAPSULES) [Suspect]
     Indication: MYELODYSPLASTIC SYNDROME
     Route: 048
     Dates: start: 20130307
  2. BENADRYL (CLONALIN) [Concomitant]
  3. IMODIUM (LOPERAMIDE HYDROCHLORIDE) (LOPERAMIDE) [Concomitant]

REACTIONS (3)
  - Haemoglobin decreased [None]
  - Dyspepsia [None]
  - Diarrhoea [None]
